FAERS Safety Report 8856015 (Version 1)
Quarter: 2012Q4

REPORT INFORMATION
  Report Type: Spontaneous
  Country: US (occurrence: None)
  Receive Date: 20121022
  Receipt Date: 20121022
  Transmission Date: 20130627
  Serious: No
  Sender: FDA-Public Use
  Company Number: None

PATIENT
  Age: 44 Year
  Sex: Female
  Weight: 74.84 kg

DRUGS (1)
  1. TRILEPTAL [Suspect]
     Indication: BIPOLAR DISORDER
     Dates: start: 20120920, end: 20121015

REACTIONS (7)
  - Arthralgia [None]
  - Joint swelling [None]
  - Hypoaesthesia [None]
  - Paraesthesia [None]
  - Activities of daily living impaired [None]
  - Gait disturbance [None]
  - Erythema [None]
